FAERS Safety Report 12472830 (Version 1)
Quarter: 2016Q2

REPORT INFORMATION
  Report Type: Spontaneous
  Country: GB (occurrence: GB)
  Receive Date: 20160616
  Receipt Date: 20160616
  Transmission Date: 20160815
  Serious: Yes (Hospitalization)
  Sender: FDA-Public Use
  Company Number: GB-JNJFOC-20160607113

PATIENT
  Age: 57 Year
  Sex: Female

DRUGS (9)
  1. MONTELUKAST [Concomitant]
     Active Substance: MONTELUKAST SODIUM
     Indication: PRODUCT USED FOR UNKNOWN INDICATION
     Dosage: DOSE: 10 (UNIT NOT SPECIFIED) AT NIGHT
     Route: 065
  2. SANDOZ TOPIRAMATE [Concomitant]
     Indication: PRODUCT USED FOR UNKNOWN INDICATION
     Dosage: DOSE: 200 (UNIT NOT SPECIFIED)
     Route: 065
  3. CORACTEN [Concomitant]
     Indication: PRODUCT USED FOR UNKNOWN INDICATION
     Dosage: DOSE: 30 (UNIT NOT SPECIFIED)
     Route: 065
  4. IBUPROFEN. [Suspect]
     Active Substance: IBUPROFEN
     Indication: MIGRAINE
     Dosage: 200MG THREE TIMES A DAY MORE DAYS THAN NOT
     Route: 065
     Dates: end: 20160524
  5. CETIRIZINE [Concomitant]
     Active Substance: CETIRIZINE HYDROCHLORIDE
     Indication: PRODUCT USED FOR UNKNOWN INDICATION
     Dosage: DOSE: 10 (UNIT NOT SPECIFIED) IN THE MORNING
     Route: 065
  6. IBUPROFEN. [Suspect]
     Active Substance: IBUPROFEN
     Route: 065
  7. ANADIN MAXIMUM [Suspect]
     Active Substance: ASPIRIN\CAFFEINE
     Indication: MIGRAINE
     Dosage: 1 -2 TABLETS FOUR TIMES A DAY
     Route: 065
     Dates: end: 20160524
  8. SERTRALINE [Concomitant]
     Active Substance: SERTRALINE HYDROCHLORIDE
     Indication: PRODUCT USED FOR UNKNOWN INDICATION
     Dosage: DOSE: 150 (UNIT NOT SPECIFIED) AT NIGHT
     Route: 065
  9. AMITRIPTYLIN [Concomitant]
     Active Substance: AMITRIPTYLINE
     Indication: PRODUCT USED FOR UNKNOWN INDICATION
     Dosage: DOSE: 50 (UNIT NOT SPECIFIED)
     Route: 065

REACTIONS (2)
  - Self-medication [None]
  - Gastrointestinal haemorrhage [Recovered/Resolved]

NARRATIVE: CASE EVENT DATE: 20160524
